FAERS Safety Report 20204497 (Version 1)
Quarter: 2021Q4

REPORT INFORMATION
  Report Type: Spontaneous
  Country: FR (occurrence: FR)
  Receive Date: 20211220
  Receipt Date: 20211220
  Transmission Date: 20220303
  Serious: Yes (Other)
  Sender: FDA-Public Use
  Company Number: FR-ABBVIE-21K-056-4180533-00

PATIENT
  Age: 35 Year
  Sex: Female
  Weight: 67 kg

DRUGS (1)
  1. VALPROATE SODIUM [Suspect]
     Active Substance: VALPROATE SODIUM
     Indication: Febrile convulsion
     Route: 048
     Dates: start: 19881223, end: 19940630

REACTIONS (2)
  - Autism spectrum disorder [Not Recovered/Not Resolved]
  - Decreased appetite [Unknown]
